FAERS Safety Report 11710464 (Version 2)
Quarter: 2015Q4

REPORT INFORMATION
  Report Type: Spontaneous
  Country: US (occurrence: US)
  Receive Date: 20151104
  Receipt Date: 20151110
  Transmission Date: 20160304
  Serious: No
  Sender: FDA-Public Use
  Company Number: US-ELI_LILLY_AND_COMPANY-US201106005720

PATIENT
  Age: 72 Year
  Sex: Female

DRUGS (4)
  1. FORTEO [Suspect]
     Active Substance: TERIPARATIDE
     Dosage: 20 UG, QD
  2. FORTEO [Suspect]
     Active Substance: TERIPARATIDE
     Dosage: 20 UG, QD
  3. FORTEO [Suspect]
     Active Substance: TERIPARATIDE
     Indication: OSTEOPOROSIS
     Dosage: 20 UG, DAILY (1/D)
     Dates: start: 20110614
  4. FORTEO [Suspect]
     Active Substance: TERIPARATIDE
     Dosage: 20 UG, QD

REACTIONS (12)
  - Herpes zoster [Not Recovered/Not Resolved]
  - Flushing [Unknown]
  - Injection site haemorrhage [Unknown]
  - Erythema [Unknown]
  - Hot flush [Unknown]
  - Injection site pain [Not Recovered/Not Resolved]
  - Dizziness [Unknown]
  - Hearing impaired [Unknown]
  - Heart rate increased [Unknown]
  - Injection site erythema [Not Recovered/Not Resolved]
  - Middle insomnia [Unknown]
  - Injection site bruising [Not Recovered/Not Resolved]

NARRATIVE: CASE EVENT DATE: 20110619
